FAERS Safety Report 12968320 (Version 1)
Quarter: 2016Q4

REPORT INFORMATION
  Report Type: Spontaneous
  Country: US (occurrence: US)
  Receive Date: 20161120
  Receipt Date: 20161120
  Transmission Date: 20170207
  Serious: No
  Sender: FDA-Public Use
  Company Number: None

PATIENT
  Sex: Female

DRUGS (2)
  1. IBRANCE [Suspect]
     Active Substance: PALBOCICLIB
     Dosage: DAILY FOR 21 DAYS, OFF 7
     Route: 048
     Dates: start: 20160209
  2. LETROZOLE 2.5MG TEVA PHARMACEUTICALS USA INC [Suspect]
     Active Substance: LETROZOLE
     Route: 048
     Dates: start: 20160209

REACTIONS (2)
  - Amnesia [None]
  - Fatigue [None]
